FAERS Safety Report 19648731 (Version 4)
Quarter: 2021Q4

REPORT INFORMATION
  Report Type: Report from Study
  Country: CN (occurrence: CN)
  Receive Date: 20210803
  Receipt Date: 20211011
  Transmission Date: 20220303
  Serious: Yes (Hospitalization)
  Sender: FDA-Public Use
  Company Number: CN-ROCHE-2847171

PATIENT
  Age: 66 Year
  Sex: Male
  Weight: 55.5 kg

DRUGS (4)
  1. ATEZOLIZUMAB [Suspect]
     Active Substance: ATEZOLIZUMAB
     Indication: Metastatic malignant melanoma
     Dosage: MOST RECENT DOSE OF ATEZOLIZUMAB ON 20/MAY/2021.?MOST RECENT DOSE OF ATEZOLIZUMAB ON 01/JUL/2021.?MO
     Route: 041
     Dates: start: 20201204
  2. BEVACIZUMAB [Suspect]
     Active Substance: BEVACIZUMAB
     Indication: Metastatic malignant melanoma
     Dosage: MOST RECENT DOSE OF BEVACIZUMAB (430.5 MG) ON 20/MAY/2021.?MOST RECENT DOSE OF BEVACIZUMAB (450 MG)
     Route: 041
     Dates: start: 20201204
  3. VALPROATE SODIUM [Suspect]
     Active Substance: VALPROATE SODIUM
     Indication: Epilepsy
     Route: 048
     Dates: start: 20210727, end: 20210811
  4. VALPROATE SODIUM [Suspect]
     Active Substance: VALPROATE SODIUM
     Route: 048
     Dates: start: 20210812

REACTIONS (5)
  - Hypophysitis [Recovering/Resolving]
  - Epilepsy [Recovering/Resolving]
  - Pyrexia [Recovered/Resolved]
  - Hypothyroidism [Not Recovered/Not Resolved]
  - Drug-induced liver injury [Recovered/Resolved]

NARRATIVE: CASE EVENT DATE: 20210609
